FAERS Safety Report 9966179 (Version 1)
Quarter: 2014Q1

REPORT INFORMATION
  Report Type: Report from Study
  Country: US (occurrence: US)
  Receive Date: 20140305
  Receipt Date: 20140305
  Transmission Date: 20141002
  Serious: Yes (Hospitalization)
  Sender: FDA-Public Use
  Company Number: US-ABBVIE-13P-163-1123205-00

PATIENT
  Sex: Female

DRUGS (7)
  1. HUMIRA [Suspect]
     Indication: CROHN^S DISEASE
     Dates: start: 2009
  2. HUMIRA [Suspect]
     Dates: start: 201305
  3. AZATHIOPRINE [Concomitant]
     Indication: ARTHRALGIA
  4. AZATHIOPRINE [Concomitant]
     Indication: CROHN^S DISEASE
  5. NEXIUM [Concomitant]
     Indication: PRODUCT USED FOR UNKNOWN INDICATION
  6. VITAMIN D [Concomitant]
     Indication: PRODUCT USED FOR UNKNOWN INDICATION
  7. CYMBALTA [Concomitant]
     Indication: PRODUCT USED FOR UNKNOWN INDICATION

REACTIONS (5)
  - Pericarditis [Not Recovered/Not Resolved]
  - Pruritus [Unknown]
  - Contusion [Unknown]
  - Back pain [Unknown]
  - Arthralgia [Unknown]
